FAERS Safety Report 13925600 (Version 2)
Quarter: 2017Q4

REPORT INFORMATION
  Report Type: Spontaneous
  Country: US (occurrence: US)
  Receive Date: 20170831
  Receipt Date: 20171004
  Transmission Date: 20180320
  Serious: Yes (Other)
  Sender: FDA-Public Use
  Company Number: US-SA-2017SA159488

PATIENT
  Age: 78 Year
  Sex: Female

DRUGS (2)
  1. LANTUS SOLOSTAR [Suspect]
     Active Substance: INSULIN GLARGINE
     Indication: TYPE 2 DIABETES MELLITUS
     Dosage: 42-50 UNITS OF THE LANTUS SOLOSTAR EVERY PM
     Route: 051
     Dates: start: 2005
  2. SOLOSTAR [Suspect]
     Active Substance: DEVICE
     Indication: TYPE 2 DIABETES MELLITUS
     Dates: start: 2005

REACTIONS (8)
  - Visual impairment [Unknown]
  - Post procedural complication [Unknown]
  - Cataract [Unknown]
  - Eye disorder [Unknown]
  - Injection site bruising [Unknown]
  - Chest pain [Unknown]
  - Hypoacusis [Unknown]
  - Device use issue [Unknown]
